FAERS Safety Report 7144843-2 (Version None)
Quarter: 2010Q4

REPORT INFORMATION
  Report Type: 
  Country: None (occurrence: None)
  Receive Date: 20101208
  Receipt Date: 20101125
  Transmission Date: 20110411
  Serious: Yes (Life-Threatening, Hospitalization, Congenital Anomaly)
  Sender: FDA-Public Use
  Company Number: JP-ELI_LILLY_AND_COMPANY-JP201006004561

PATIENT
  Sex: Female
  Weight: 2.7 kg

DRUGS (3)
  1. ZYPREXA [Suspect]
     Indication: SCHIZOPHRENIA
     Dosage: 7.5 MG, UNK
     Route: 064
     Dates: end: 20100603
  2. MAGMITT [Concomitant]
     Indication: CONSTIPATION
     Dosage: 990 MG, UNK
     Route: 064
     Dates: end: 20100603
  3. DEPAKENE [Concomitant]
     Indication: BIPOLAR I DISORDER
     Dosage: 600 MG, DAILY (1/D)
     Route: 064
     Dates: start: 20090918, end: 20090920

REACTIONS (6)
  - CLEFT PALATE [None]
  - DIAPHRAGMATIC ABNORMAL RELAXATION [None]
  - DRUG EXPOSURE DURING PREGNANCY [None]
  - MULTIPLE CONGENITAL ABNORMALITIES [None]
  - PULMONARY HYPERTENSION [None]
  - PULMONARY HYPOPLASIA [None]
